FAERS Safety Report 24179456 (Version 6)
Quarter: 2025Q1

REPORT INFORMATION
  Report Type: Spontaneous
  Country: US (occurrence: US)
  Receive Date: 20240806
  Receipt Date: 20250318
  Transmission Date: 20250409
  Serious: No
  Sender: PFIZER
  Company Number: US-SEATTLE GENETICS-2024SGN05381

PATIENT
  Age: 58 Year
  Sex: Female

DRUGS (3)
  1. TUKYSA [Suspect]
     Active Substance: TUCATINIB
     Indication: Neoplasm malignant
     Dosage: 150 MG, 2X/DAY
  2. TUKYSA [Suspect]
     Active Substance: TUCATINIB
     Indication: Brain neoplasm malignant
     Dates: end: 202405
  3. TUKYSA [Suspect]
     Active Substance: TUCATINIB
     Indication: Malignant neoplasm of spinal cord
     Dosage: 200 MG, 2X/DAY (150MG, 1 TABLET TWICE A DAY, 50MG 1 TABLET TWICE A DAY)

REACTIONS (5)
  - Off label use [Unknown]
  - Cholelithiasis [Unknown]
  - Laboratory test abnormal [Unknown]
  - Blood bilirubin increased [Unknown]
  - Illness [Unknown]
